FAERS Safety Report 4410466-9 (Version None)
Quarter: 2004Q3

REPORT INFORMATION
  Report Type: 
  Country: None (occurrence: None)
  Receive Date: 20040729
  Receipt Date: 20040721
  Transmission Date: 20050211
  Serious: Yes (Other)
  Sender: FDA-Public Use
  Company Number: US-BRISTOL-MYERS SQUIBB COMPANY-12647210

PATIENT
  Sex: Male
  Weight: 109 kg

DRUGS (5)
  1. ERBITUX [Suspect]
     Indication: COLORECTAL CANCER METASTATIC
     Route: 042
     Dates: start: 20040720, end: 20040720
  2. BENADRYL [Concomitant]
     Indication: PREMEDICATION
     Route: 042
     Dates: start: 20040720, end: 20040720
  3. DEXAMETHASONE [Concomitant]
     Indication: PREMEDICATION
     Route: 042
     Dates: start: 20040720, end: 20040720
  4. ZANTAC [Concomitant]
     Indication: PREMEDICATION
     Route: 042
     Dates: start: 20040720, end: 20040720
  5. MULTI-VITAMIN [Concomitant]

REACTIONS (6)
  - ABDOMINAL PAIN [None]
  - MEDICATION ERROR [None]
  - PRURITUS [None]
  - TUMOUR HAEMORRHAGE [None]
  - UNDERDOSE [None]
  - URTICARIA [None]
